FAERS Safety Report 7115731-2 (Version None)
Quarter: 2010Q4

REPORT INFORMATION
  Report Type: 
  Country: None (occurrence: None)
  Receive Date: 20101122
  Receipt Date: 20101116
  Transmission Date: 20110411
  Serious: Yes (Death)
  Sender: FDA-Public Use
  Company Number: PHHY2010US77801

PATIENT
  Age: 63 Year
  Sex: Male

DRUGS (1)
  1. VALTURNA [Suspect]

REACTIONS (2)
  - DEATH [None]
  - MALAISE [None]
